FAERS Safety Report 18730264 (Version 6)
Quarter: 2021Q3

REPORT INFORMATION
  Report Type: Spontaneous
  Country: CA (occurrence: CA)
  Receive Date: 20210112
  Receipt Date: 20210719
  Transmission Date: 20211014
  Serious: Yes (Other)
  Sender: FDA-Public Use
  Company Number: CA-PFIZER INC-2020446953

PATIENT
  Age: 1 Year
  Sex: Male
  Weight: 9.9 kg

DRUGS (7)
  1. RAPAMUNE [Suspect]
     Active Substance: SIROLIMUS
     Indication: AUTOIMMUNE HAEMOLYTIC ANAEMIA
  2. VITAMIN D [COLECALCIFEROL] [Concomitant]
     Active Substance: CHOLECALCIFEROL
     Dosage: 400 IU
  3. DAPSONE. [Concomitant]
     Active Substance: DAPSONE
     Dosage: 100 MG
  4. PREDNISONE. [Concomitant]
     Active Substance: PREDNISONE
     Dosage: 5 MG/ML, SUSPENSION
  5. RAPAMUNE [Suspect]
     Active Substance: SIROLIMUS
     Indication: ALLOGENIC BONE MARROW TRANSPLANTATION THERAPY
     Dosage: UNK
  6. OMEPRAZOLE MAGNESIUM. [Concomitant]
     Active Substance: OMEPRAZOLE MAGNESIUM
     Dosage: 10 MG
  7. SIROLIMUS. [Concomitant]
     Active Substance: SIROLIMUS
     Dosage: 1 MG/ML, SOLUTION

REACTIONS (8)
  - Skin warm [Unknown]
  - Adrenal insufficiency [Unknown]
  - Off label use [Unknown]
  - Retinopathy of prematurity [Unknown]
  - Dry skin [Unknown]
  - Blood immunoglobulin G decreased [Unknown]
  - Visual impairment [Unknown]
  - Autoimmune haemolytic anaemia [Unknown]

NARRATIVE: CASE EVENT DATE: 20201211
